FAERS Safety Report 10711836 (Version 1)
Quarter: 2015Q1

REPORT INFORMATION
  Report Type: Spontaneous
  Country: PT (occurrence: PT)
  Receive Date: 20150114
  Receipt Date: 20150114
  Transmission Date: 20150721
  Serious: Yes (Other)
  Sender: FDA-Public Use
  Company Number: PT-PFIZER INC-2015006296

PATIENT
  Age: 9 Year
  Sex: Female

DRUGS (3)
  1. BRUFEN [Concomitant]
     Active Substance: IBUPROFEN
     Dosage: UNK
  2. ZITHROMAX [Suspect]
     Active Substance: AZITHROMYCIN DIHYDRATE
     Indication: RESPIRATORY TRACT INFECTION
     Dosage: UNK
     Route: 048
     Dates: start: 201406
  3. BEN-U-RON [Concomitant]
     Dosage: UNK

REACTIONS (3)
  - Vomiting [Recovered/Resolved]
  - Eye oedema [Recovered/Resolved]
  - Urticaria [Recovered/Resolved]

NARRATIVE: CASE EVENT DATE: 201406
